FAERS Safety Report 9486959 (Version 1)
Quarter: 2013Q3

REPORT INFORMATION
  Report Type: Spontaneous
  Country: IT (occurrence: None)
  Receive Date: 20130823
  Receipt Date: 20130823
  Transmission Date: 20140515
  Serious: Yes (Hospitalization)
  Sender: FDA-Public Use
  Company Number: AUR-APL-2013-06991

PATIENT
  Age: 88 Year
  Sex: Female

DRUGS (9)
  1. OLANZAPINE [Suspect]
     Indication: PRODUCT USED FOR UNKNOWN INDICATION
     Dosage: 2.5MG, 1D, ORAL
     Route: 048
     Dates: start: 20130701, end: 20130726
  2. PRISMA (MESOGLYCAN) [Concomitant]
  3. LASIX (FUROSEMIDE) [Concomitant]
  4. LANOXIN (DIGOXIN) [Concomitant]
  5. CARDIOASPIRIN (ACETYLSALICYLIC ACID) [Concomitant]
  6. GLIBOMET (GLIBOMET) [Concomitant]
  7. RIVOTRIL (CLONAZEPAM) [Concomitant]
  8. FOLINA (FOLIC ACID) [Concomitant]
  9. OMEPRAZOLE (OMEPRAZOLE) [Concomitant]

REACTIONS (7)
  - Sopor [None]
  - Alanine aminotransferase increased [None]
  - Blood glucose increased [None]
  - Blood urea increased [None]
  - Oxygen saturation decreased [None]
  - Platelet count decreased [None]
  - Blood pressure increased [None]
